FAERS Safety Report 22362589 (Version 4)
Quarter: 2023Q4

REPORT INFORMATION
  Report Type: Report from Study
  Country: US (occurrence: US)
  Receive Date: 20230524
  Receipt Date: 20231116
  Transmission Date: 20240110
  Serious: Yes (Other)
  Sender: FDA-Public Use
  Company Number: US-HORIZON THERAPEUTICS-HZN-2023-003883

PATIENT

DRUGS (8)
  1. TEPEZZA [Suspect]
     Active Substance: TEPROTUMUMAB-TRBW
     Indication: Graves^ disease
     Dosage: 809 MG (DILUTE TEPEZZA VIALS WITH 10 ML STERILE WATER. 17 ML = 809 MG. WITHDRAW 17 ML SALINE FROM 10
     Route: 042
     Dates: start: 202305
  2. TEPEZZA [Suspect]
     Active Substance: TEPROTUMUMAB-TRBW
     Dosage: UNK (INFUSION)
     Route: 042
     Dates: start: 2023
  3. TEPEZZA [Suspect]
     Active Substance: TEPROTUMUMAB-TRBW
     Dosage: 1620 MG
     Route: 042
     Dates: start: 202305
  4. MELOXICAM [Concomitant]
     Active Substance: MELOXICAM
     Dosage: 15 MG
     Route: 065
  5. SODIUM CHLORIDE [Concomitant]
     Active Substance: SODIUM CHLORIDE
     Dosage: 0.9 %
     Route: 065
  6. SODIUM CHLORIDE [Concomitant]
     Active Substance: SODIUM CHLORIDE
     Route: 065
  7. AMLODIPINE BESYLATE [Concomitant]
     Active Substance: AMLODIPINE BESYLATE
     Dosage: 5 MG
     Route: 065
  8. LOSARTAN POTASSIUM [Concomitant]
     Active Substance: LOSARTAN POTASSIUM
     Dosage: 50 MG
     Route: 065

REACTIONS (9)
  - Blood pressure increased [Unknown]
  - Blood pressure fluctuation [Unknown]
  - Strabismus [Unknown]
  - Drug ineffective [Unknown]
  - Nausea [Unknown]
  - Muscle spasms [Unknown]
  - Dysgeusia [Unknown]
  - Diplopia [Unknown]
  - Vision blurred [Not Recovered/Not Resolved]

NARRATIVE: CASE EVENT DATE: 20230101
